FAERS Safety Report 6242852-9 (Version None)
Quarter: 2009Q2

REPORT INFORMATION
  Report Type: 
  Country: None (occurrence: None)
  Receive Date: 20090624
  Receipt Date: 20090622
  Transmission Date: 20091009
  Serious: Yes (Hospitalization)
  Sender: FDA-Public Use
  Company Number: B0529241A

PATIENT
  Sex: Male

DRUGS (2)
  1. AVANDAMET [Suspect]
     Dosage: 1TAB TWICE PER DAY
     Route: 048
     Dates: start: 20060614, end: 20070929
  2. DAONIL [Concomitant]
     Dosage: 10MG TWICE PER DAY
     Route: 065

REACTIONS (1)
  - GUILLAIN-BARRE SYNDROME [None]
